FAERS Safety Report 25948141 (Version 1)
Quarter: 2025Q4

REPORT INFORMATION
  Report Type: Spontaneous
  Country: CN (occurrence: CN)
  Receive Date: 20251022
  Receipt Date: 20251022
  Transmission Date: 20260118
  Serious: Yes (Life-Threatening)
  Sender: ROCHE
  Company Number: CN-BoehringerIngelheim-2025-BI-101600

PATIENT
  Age: 73 Year
  Sex: Female
  Weight: 55.0 kg

DRUGS (1)
  1. ALTEPLASE [Suspect]
     Active Substance: ALTEPLASE
     Indication: Cerebral infarction
     Dosage: WITH SELF-PROVIDED SOLVENT 50 ML
     Route: 042
     Dates: start: 20250918, end: 20250918

REACTIONS (9)
  - Hyperhidrosis [Recovering/Resolving]
  - Chest discomfort [Recovering/Resolving]
  - Sensation of foreign body [Recovering/Resolving]
  - Oropharyngeal erythema [Recovering/Resolving]
  - Blood pressure systolic increased [Unknown]
  - Pharyngeal swelling [Recovering/Resolving]
  - Tongue erythema [Recovering/Resolving]
  - Swollen tongue [Recovering/Resolving]
  - Off label use [Unknown]

NARRATIVE: CASE EVENT DATE: 20250918
